FAERS Safety Report 17952638 (Version 1)
Quarter: 2020Q2

REPORT INFORMATION
  Report Type: Report from Study
  Country: AU (occurrence: AU)
  Receive Date: 20200626
  Receipt Date: 20200626
  Transmission Date: 20200714
  Serious: Yes (Other)
  Sender: FDA-Public Use
  Company Number: AU-REGENERON PHARMACEUTICALS, INC.-2020-44783

PATIENT

DRUGS (8)
  1. AMOXICILLIN. [Concomitant]
     Active Substance: AMOXICILLIN
     Indication: WOUND
     Dosage: 2 GM (1 GM, 2 IN 1 D)
     Route: 048
     Dates: start: 20200109
  2. TARGIN [Concomitant]
     Active Substance: NALOXONE HYDROCHLORIDE\OXYCODONE HYDROCHLORIDE
     Indication: PAIN
     Dosage: 15 MG, 1 IN 1 D
     Route: 048
     Dates: start: 20200109
  3. CEMIPLIMAB [Suspect]
     Active Substance: CEMIPLIMAB
     Indication: SQUAMOUS CELL CARCINOMA
     Dosage: 350 MG
     Route: 042
     Dates: start: 20200415, end: 20200415
  4. RP1 [Suspect]
     Active Substance: SERINE/THREONINE-PROTEIN KINASE 19
     Dosage: 10^7 PFU/ML
     Route: 036
     Dates: start: 20200506
  5. RP1 [Suspect]
     Active Substance: SERINE/THREONINE-PROTEIN KINASE 19
     Indication: SQUAMOUS CELL CARCINOMA
     Dosage: 10^6 PFU/ML (1 IN 3 WK)
     Route: 036
     Dates: start: 20200325, end: 20200325
  6. PARACETAMOL [Concomitant]
     Active Substance: ACETAMINOPHEN
     Indication: PAIN
     Dosage: 1 GM, AS REQUIRED
     Route: 048
     Dates: start: 20200109
  7. CEMIPLIMAB [Suspect]
     Active Substance: CEMIPLIMAB
     Dosage: 350 MG
     Route: 042
     Dates: start: 20200506
  8. SERC (BETAHISTINE HYDROCHLORIDE) [Concomitant]
     Active Substance: BETAHISTINE HYDROCHLORIDE
     Indication: GAIT DISTURBANCE
     Dosage: 24 MG, (8 MG, 3 IN 1 D)
     Route: 048
     Dates: start: 20200129

REACTIONS (1)
  - Syncope [Recovered/Resolved]

NARRATIVE: CASE EVENT DATE: 20200507
